FAERS Safety Report 19756069 (Version 2)
Quarter: 2021Q3

REPORT INFORMATION
  Report Type: Report from Study
  Country: US (occurrence: US)
  Receive Date: 20210827
  Receipt Date: 20210921
  Transmission Date: 20211014
  Serious: No
  Sender: FDA-Public Use
  Company Number: NVSC2021US193328

PATIENT
  Sex: Female

DRUGS (2)
  1. ENTRESTO [Suspect]
     Active Substance: SACUBITRIL\VALSARTAN
     Indication: PRODUCT USED FOR UNKNOWN INDICATION
     Dosage: 1 DF(49.51 MG)
     Route: 065
  2. WARFARINE [Concomitant]
     Active Substance: WARFARIN
     Indication: PRODUCT USED FOR UNKNOWN INDICATION
     Dosage: UNK
     Route: 065

REACTIONS (7)
  - Weight increased [Unknown]
  - Product dose omission issue [Unknown]
  - Oropharyngeal pain [Not Recovered/Not Resolved]
  - International normalised ratio [Unknown]
  - Dental caries [Unknown]
  - Fatigue [Recovering/Resolving]
  - Ear pain [Unknown]
